FAERS Safety Report 21238495 (Version 1)
Quarter: 2022Q3

REPORT INFORMATION
  Report Type: Spontaneous
  Country: US (occurrence: US)
  Receive Date: 20220822
  Receipt Date: 20220822
  Transmission Date: 20221027
  Serious: No
  Sender: FDA-Public Use
  Company Number: US-GSK-US2022118472

PATIENT
  Age: 71 Year
  Sex: Female

DRUGS (11)
  1. ANORO ELLIPTA [Suspect]
     Active Substance: UMECLIDINIUM BROMIDE\VILANTEROL TRIFENATATE
     Indication: Lung neoplasm malignant
     Dosage: UNK DOSE TAKEN EVERY OTHER DAY INSTEAD OF ONCE A DAY
     Dates: start: 20220808
  2. ANORO ELLIPTA [Suspect]
     Active Substance: UMECLIDINIUM BROMIDE\VILANTEROL TRIFENATATE
     Indication: Lung neoplasm malignant
     Dosage: UNK DOSE TAKEN EVERY OTHER DAY INSTEAD OF ONCE A DAY
     Dates: start: 20220808
  3. ANORO ELLIPTA [Suspect]
     Active Substance: UMECLIDINIUM BROMIDE\VILANTEROL TRIFENATATE
  4. ANORO ELLIPTA [Suspect]
     Active Substance: UMECLIDINIUM BROMIDE\VILANTEROL TRIFENATATE
     Indication: Lung neoplasm malignant
     Dosage: UNK DOSE TAKEN EVERY OTHER DAY INSTEAD OF ONCE A DAY
     Dates: start: 20220808
  5. ANORO ELLIPTA [Suspect]
     Active Substance: UMECLIDINIUM BROMIDE\VILANTEROL TRIFENATATE
  6. ANORO ELLIPTA [Suspect]
     Active Substance: UMECLIDINIUM BROMIDE\VILANTEROL TRIFENATATE
  7. ROSUVASTATIN [Concomitant]
     Active Substance: ROSUVASTATIN
     Indication: Blood cholesterol increased
     Dosage: UNK
     Dates: start: 20210101
  8. ANORO ELLIPTA [Suspect]
     Active Substance: UMECLIDINIUM BROMIDE\VILANTEROL TRIFENATATE
     Indication: Chronic obstructive pulmonary disease
     Dosage: 1 PUFF(S), QD 62.5 MCG IN THE MORNING
     Route: 055
     Dates: start: 2020
  9. ANORO ELLIPTA [Suspect]
     Active Substance: UMECLIDINIUM BROMIDE\VILANTEROL TRIFENATATE
  10. ANORO ELLIPTA [Suspect]
     Active Substance: UMECLIDINIUM BROMIDE\VILANTEROL TRIFENATATE
  11. ANORO ELLIPTA [Suspect]
     Active Substance: UMECLIDINIUM BROMIDE\VILANTEROL TRIFENATATE

REACTIONS (5)
  - Incorrect dosage administered [Unknown]
  - Product dose omission issue [Recovered/Resolved]
  - Inappropriate schedule of product administration [Unknown]
  - Inability to afford medication [Unknown]
  - Product use in unapproved indication [Unknown]

NARRATIVE: CASE EVENT DATE: 20220801
